FAERS Safety Report 13725266 (Version 2)
Quarter: 2017Q3

REPORT INFORMATION
  Report Type: Spontaneous
  Country: NO (occurrence: NO)
  Receive Date: 20170707
  Receipt Date: 20170713
  Transmission Date: 20171127
  Serious: Yes (Death, Other)
  Sender: FDA-Public Use
  Company Number: NO-009507513-1706NOR010832

PATIENT
  Age: 69 Year
  Sex: Female

DRUGS (7)
  1. KEYTRUDA [Suspect]
     Active Substance: PEMBROLIZUMAB
     Indication: LUNG NEOPLASM MALIGNANT
     Dosage: 2 MG/KG, Q3W
     Route: 065
     Dates: start: 20170105, end: 20170126
  2. OXYNORM [Concomitant]
     Active Substance: OXYCODONE HYDROCHLORIDE
     Dosage: INCREASED  20170207
  3. NOZINAN [Concomitant]
     Active Substance: LEVOMEPROMAZINE
     Route: 030
     Dates: start: 20170207
  4. KLEXANE [Concomitant]
     Active Substance: ENOXAPARIN
  5. OXYCONTIN [Concomitant]
     Active Substance: OXYCODONE HYDROCHLORIDE
     Dosage: INCREASED 20170207
  6. OPDIVO [Suspect]
     Active Substance: NIVOLUMAB
     Indication: LUNG NEOPLASM MALIGNANT
     Dosage: 3 MG/KG, QOW
     Route: 065
     Dates: start: 20150714, end: 20161011
  7. TARGINIQ ER [Concomitant]
     Active Substance: NALOXONE HYDROCHLORIDE\OXYCODONE HYDROCHLORIDE
     Dates: start: 20170207

REACTIONS (4)
  - Weight decreased [Fatal]
  - Pneumonia [Fatal]
  - General physical health deterioration [Fatal]
  - Cardiac failure [Fatal]

NARRATIVE: CASE EVENT DATE: 20170211
